FAERS Safety Report 7391038-3 (Version None)
Quarter: 2011Q2

REPORT INFORMATION
  Report Type: 
  Country: None (occurrence: None)
  Receive Date: 20110404
  Receipt Date: 20110323
  Transmission Date: 20111010
  Serious: No
  Sender: FDA-Public Use
  Company Number: US-JNJFOC-20110311836

PATIENT
  Sex: Female
  Weight: 51.26 kg

DRUGS (3)
  1. DURAGESIC-50 [Suspect]
     Indication: PAIN
     Route: 062
  2. DURAGESIC-50 [Suspect]
     Dosage: NDC#50458-093-05
     Route: 062
  3. SOMA [Concomitant]
     Indication: MUSCLE RELAXANT THERAPY
     Dosage: AS NEEDED
     Route: 048

REACTIONS (6)
  - INTENTIONAL DRUG MISUSE [None]
  - INSOMNIA [None]
  - MALAISE [None]
  - PRODUCT QUALITY ISSUE [None]
  - APPETITE DISORDER [None]
  - DRUG DOSE OMISSION [None]
